FAERS Safety Report 6410840-5 (Version None)
Quarter: 2009Q4

REPORT INFORMATION
  Report Type: 
  Country: None (occurrence: None)
  Receive Date: 20091020
  Receipt Date: 20091020
  Transmission Date: 20100525
  Serious: No
  Sender: FDA-Public Use
  Company Number: None

PATIENT
  Age: 34 Year
  Sex: Male

DRUGS (1)
  1. PODOFILOX [Suspect]
     Indication: ANOGENITAL WARTS
     Dosage: APPLY BID TOP
     Route: 061
     Dates: start: 20091005, end: 20091007

REACTIONS (3)
  - PAIN [None]
  - PRURITUS GENERALISED [None]
  - SKIN EXFOLIATION [None]
